FAERS Safety Report 16994526 (Version 3)
Quarter: 2019Q4

REPORT INFORMATION
  Report Type: Report from Study
  Country: IT (occurrence: IT)
  Receive Date: 20191105
  Receipt Date: 20191227
  Transmission Date: 20200122
  Serious: Yes (Other)
  Sender: FDA-Public Use
  Company Number: IT-JNJFOC-20191044660

PATIENT

DRUGS (1)
  1. TRABECTEDIN [Suspect]
     Active Substance: TRABECTEDIN
     Indication: PLEURAL MESOTHELIOMA
     Route: 042

REACTIONS (3)
  - Transaminases increased [Unknown]
  - Fatigue [Unknown]
  - Pyrexia [Unknown]
